FAERS Safety Report 16622990 (Version 1)
Quarter: 2019Q3

REPORT INFORMATION
  Report Type: Spontaneous
  Country: FR (occurrence: FR)
  Receive Date: 20190723
  Receipt Date: 20190723
  Transmission Date: 20191004
  Serious: Yes (Hospitalization)
  Sender: FDA-Public Use
  Company Number: FR-TEVA-2019-FR-1081737

PATIENT
  Age: 86 Year
  Sex: Female
  Weight: 57.8 kg

DRUGS (8)
  1. FUROSEMIDE. [Concomitant]
     Active Substance: FUROSEMIDE
  2. LEVOTHYROX [Concomitant]
     Active Substance: LEVOTHYROXINE
  3. SIMVASTATINE [Concomitant]
     Active Substance: SIMVASTATIN
  4. DILTIAZEM (CHLORHYDRATE DE) [Suspect]
     Active Substance: DILTIAZEM HYDROCHLORIDE
     Indication: CARDIAC FAILURE
     Route: 048
     Dates: start: 201906, end: 20190619
  5. XAGRID [Concomitant]
     Active Substance: ANAGRELIDE HYDROCHLORIDE
  6. DIFFU K [Concomitant]
     Active Substance: POTASSIUM CHLORIDE
  7. LEVETIRACETAM. [Concomitant]
     Active Substance: LEVETIRACETAM
  8. PREVISCAN [Concomitant]

REACTIONS (1)
  - Eczema [Recovering/Resolving]

NARRATIVE: CASE EVENT DATE: 201906
